FAERS Safety Report 4613510-9 (Version None)
Quarter: 2005Q1

REPORT INFORMATION
  Report Type: 
  Country: None (occurrence: None)
  Receive Date: 20050321
  Receipt Date: 20050309
  Transmission Date: 20050727
  Serious: Yes (Hospitalization)
  Sender: FDA-Public Use
  Company Number: JP-JNJFOC-20050205433

PATIENT
  Sex: Male
  Weight: 51 kg

DRUGS (13)
  1. REMICADE [Suspect]
     Route: 042
  2. REMICADE [Suspect]
     Route: 042
  3. REMICADE [Suspect]
     Indication: RHEUMATOID ARTHRITIS
     Route: 042
  4. METOLATE [Suspect]
     Route: 049
  5. METOLATE [Suspect]
     Route: 049
  6. METOLATE [Suspect]
     Indication: RHEUMATOID ARTHRITIS
     Route: 049
  7. LANIRAPID [Concomitant]
     Route: 049
  8. LASIX [Concomitant]
     Route: 049
  9. TAMBOCOR [Concomitant]
     Route: 049
  10. GASTER D [Concomitant]
     Route: 049
  11. LOXONIN [Concomitant]
     Route: 049
  12. DASEN [Concomitant]
     Route: 049
  13. MEIACT [Concomitant]
     Route: 049

REACTIONS (3)
  - INFUSION RELATED REACTION [None]
  - PNEUMONIA [None]
  - TACHYCARDIA PAROXYSMAL [None]
